FAERS Safety Report 6727494-0 (Version None)
Quarter: 2010Q2

REPORT INFORMATION
  Report Type: 
  Country: None (occurrence: None)
  Receive Date: 20100517
  Receipt Date: 20100511
  Transmission Date: 20101027
  Serious: Yes (Other)
  Sender: FDA-Public Use
  Company Number: BE-BRISTOL-MYERS SQUIBB COMPANY-15099229

PATIENT
  Age: 73 Year
  Sex: Male

DRUGS (2)
  1. ORENCIA [Suspect]
     Dosage: 1 DF - 3 VIALS;2ND INF ON 30APR10
     Dates: start: 20100416
  2. PREDNISOLONE [Concomitant]
     Dosage: 2 TO 3 TIMES

REACTIONS (1)
  - GOUT [None]
